FAERS Safety Report 17037768 (Version 1)
Quarter: 2019Q4

REPORT INFORMATION
  Report Type: Spontaneous
  Country: JP (occurrence: JP)
  Receive Date: 20191115
  Receipt Date: 20191115
  Transmission Date: 20200122
  Serious: Yes (Other)
  Sender: FDA-Public Use
  Company Number: JP-PFIZER INC-2019266163

PATIENT
  Sex: Male

DRUGS (2)
  1. VFEND [Suspect]
     Active Substance: VORICONAZOLE
     Indication: PULMONARY MYCOSIS
     Dosage: UNK
     Route: 048
     Dates: start: 20190502
  2. CRAVIT [Concomitant]
     Active Substance: LEVOFLOXACIN
     Dosage: UNK UNK, MONTHLY
     Route: 048

REACTIONS (11)
  - Hallucination, visual [Unknown]
  - Hallucination, auditory [Unknown]
  - Cataract [Unknown]
  - Drug ineffective [Unknown]
  - Insomnia [Unknown]
  - Vision blurred [Recovering/Resolving]
  - Blepharospasm [Unknown]
  - Photopsia [Unknown]
  - Nausea [Unknown]
  - Liver function test increased [Unknown]
  - Productive cough [Unknown]

NARRATIVE: CASE EVENT DATE: 2019
